FAERS Safety Report 23592275 (Version 1)
Quarter: 2024Q1

REPORT INFORMATION
  Report Type: Spontaneous
  Country: ES (occurrence: ES)
  Receive Date: 20240304
  Receipt Date: 20240304
  Transmission Date: 20240410
  Serious: Yes (Other)
  Sender: FDA-Public Use
  Company Number: None

PATIENT
  Age: 55 Year
  Sex: Male

DRUGS (1)
  1. CEFTAROLINE FOSAMIL [Suspect]
     Active Substance: CEFTAROLINE FOSAMIL
     Indication: Pneumonia
     Dosage: TIME INTERVAL: 0.33333333 DAYS: 600 MG, CYCLIC, EVERY 8H
     Route: 042
     Dates: start: 20240124, end: 20240129

REACTIONS (1)
  - Hyperkalaemia [Recovered/Resolved]

NARRATIVE: CASE EVENT DATE: 20240128
